FAERS Safety Report 10952213 (Version 1)
Quarter: 2015Q1

REPORT INFORMATION
  Report Type: Spontaneous
  Country: US (occurrence: None)
  Receive Date: 20150323
  Receipt Date: 20150323
  Transmission Date: 20150721
  Serious: Yes (Other)
  Sender: FDA-Public Use
  Company Number: CIO15017369

PATIENT

DRUGS (1)
  1. ZZZQUIL NIGHTTIME SLEEP-AID [Suspect]
     Active Substance: DIPHENHYDRAMINE HYDROCHLORIDE
     Dosage: DRANK 2 BOTTLES, ORAL
     Route: 048

REACTIONS (4)
  - Intentional overdose [None]
  - Drug abuse [None]
  - Loss of consciousness [None]
  - Incorrect dose administered [None]
